FAERS Safety Report 8119096-9 (Version None)
Quarter: 2012Q1

REPORT INFORMATION
  Report Type: 
  Country: None (occurrence: None)
  Receive Date: 20120207
  Receipt Date: 20120201
  Transmission Date: 20120608
  Serious: Yes (Other)
  Sender: FDA-Public Use
  Company Number: PHHY2012FR008490

PATIENT
  Sex: Female

DRUGS (3)
  1. RADIATION THERAPY [Concomitant]
  2. VINORELBINE [Suspect]
     Indication: CHEMOTHERAPY
     Dosage: 25 MG/M2, UNK
  3. FLUOROURACIL [Suspect]
     Indication: CHEMOTHERAPY
     Dosage: 500 MG/M2, UNK

REACTIONS (1)
  - SKIN TOXICITY [None]
